FAERS Safety Report 13385671 (Version 3)
Quarter: 2017Q3

REPORT INFORMATION
  Report Type: Report from Study
  Country: JP (occurrence: JP)
  Receive Date: 20170330
  Receipt Date: 20170901
  Transmission Date: 20171127
  Serious: Yes (Death, Life-Threatening, Hospitalization)
  Sender: FDA-Public Use
  Company Number: JP-B.I. PHARMACEUTICALS,INC./RIDGEFIELD-2017-NB-001701

PATIENT
  Age: 74 Year
  Sex: Male
  Weight: 57.9 kg

DRUGS (1)
  1. PRAZAXA [Suspect]
     Active Substance: DABIGATRAN ETEXILATE MESYLATE
     Indication: ATRIAL FIBRILLATION
     Route: 048
     Dates: end: 20170328

REACTIONS (3)
  - Malignant neoplasm progression [Fatal]
  - Blood pressure decreased [Fatal]
  - Cardiac tamponade [Unknown]

NARRATIVE: CASE EVENT DATE: 20170328
